FAERS Safety Report 12759994 (Version 2)
Quarter: 2016Q4

REPORT INFORMATION
  Report Type: Spontaneous
  Country: US (occurrence: US)
  Receive Date: 20160919
  Receipt Date: 20161010
  Transmission Date: 20170207
  Serious: Yes (Hospitalization)
  Sender: FDA-Public Use
  Company Number: US-PFIZER INC-2016436116

PATIENT
  Age: 81 Year
  Sex: Female

DRUGS (7)
  1. LYRICA [Suspect]
     Active Substance: PREGABALIN
     Indication: NEUROPATHY PERIPHERAL
     Dosage: 50 MG, 3X/DAY
     Dates: start: 20160818, end: 20160908
  2. KLOR-CON M20 [Concomitant]
     Active Substance: POTASSIUM CHLORIDE
     Dosage: 20 MG, DAILY
  3. AMLODIPINE [Concomitant]
     Active Substance: AMLODIPINE BESYLATE
     Dosage: 10 MG, DAILY
  4. VALSARTAN. [Concomitant]
     Active Substance: VALSARTAN
     Dosage: 320 MG, DAILY
  5. FUROSEMIDE. [Concomitant]
     Active Substance: FUROSEMIDE
     Dosage: 40 MG, DAILY
  6. LYRICA [Suspect]
     Active Substance: PREGABALIN
     Indication: NERVE INJURY
  7. HYDRALAZINE [Concomitant]
     Active Substance: HYDRALAZINE HYDROCHLORIDE
     Dosage: 20 MG, DAILY (10MG-2 DAILY)

REACTIONS (14)
  - Facial pain [Recovered/Resolved]
  - Condition aggravated [Recovered/Resolved]
  - Vision blurred [Unknown]
  - Joint swelling [Recovered/Resolved]
  - Weight increased [Recovered/Resolved]
  - Eyelid pain [Recovered/Resolved]
  - Blister [Recovered/Resolved]
  - Eyelid exfoliation [Recovered/Resolved]
  - Eye infection [Unknown]
  - Rash [Recovered/Resolved]
  - Urticaria [Recovering/Resolving]
  - Skin lesion [Recovered/Resolved]
  - Eye pruritus [Recovered/Resolved]
  - Visual impairment [Recovered/Resolved]

NARRATIVE: CASE EVENT DATE: 20160818
